FAERS Safety Report 20776819 (Version 2)
Quarter: 2022Q2

REPORT INFORMATION
  Report Type: Spontaneous
  Country: CA (occurrence: CA)
  Receive Date: 20220502
  Receipt Date: 20220602
  Transmission Date: 20220721
  Serious: Yes (Death, Other)
  Sender: FDA-Public Use
  Company Number: CA-PFIZER INC-202101796154

PATIENT
  Age: 53 Year
  Sex: Female
  Weight: 52 kg

DRUGS (12)
  1. ZIRABEV [Suspect]
     Active Substance: BEVACIZUMAB-BVZR
     Indication: Squamous cell carcinoma of the cervix
     Dosage: 15 MG/KG, EVERY 3 WEEKS
     Route: 042
  2. ZIRABEV [Suspect]
     Active Substance: BEVACIZUMAB-BVZR
     Indication: Metastases to lung
     Dosage: 15 MG/KG, EVERY 3 WEEKS
     Route: 042
  3. ZIRABEV [Suspect]
     Active Substance: BEVACIZUMAB-BVZR
     Dosage: 1500 MG, EVERY 3 WEEKS
     Route: 042
     Dates: start: 20211229
  4. ZIRABEV [Suspect]
     Active Substance: BEVACIZUMAB-BVZR
     Dosage: 1500 MG, EVERY 3 WEEKS
     Route: 042
     Dates: start: 20211229
  5. ZIRABEV [Suspect]
     Active Substance: BEVACIZUMAB-BVZR
     Dosage: 780 MG, EVERY 3 WEEKS
     Route: 042
     Dates: start: 20220119
  6. ZIRABEV [Suspect]
     Active Substance: BEVACIZUMAB-BVZR
     Dosage: 780 MG
     Route: 042
     Dates: start: 20220209, end: 20220209
  7. HYDROMORPHONE [Concomitant]
     Active Substance: HYDROMORPHONE
     Dosage: UNK
     Route: 048
  8. HYDROMORPHONE [Concomitant]
     Active Substance: HYDROMORPHONE
     Dosage: UNK
     Route: 048
     Dates: start: 20220209, end: 20220209
  9. OPDIVO [Concomitant]
     Active Substance: NIVOLUMAB
     Dosage: UNK
     Route: 042
  10. OPDIVO [Concomitant]
     Active Substance: NIVOLUMAB
     Dosage: UNK
     Route: 042
     Dates: start: 20220209, end: 20220209
  11. TYLENOL [Concomitant]
     Active Substance: ACETAMINOPHEN
     Dosage: 650 MG
     Route: 048
  12. TYLENOL [Concomitant]
     Active Substance: ACETAMINOPHEN
     Dosage: 650 MG
     Route: 048
     Dates: start: 20220209, end: 20220209

REACTIONS (6)
  - Death [Fatal]
  - Cough [Recovered/Resolved]
  - Dyspnoea [Recovered/Resolved]
  - Off label use [Unknown]
  - Heart rate increased [Unknown]
  - Asthenia [Unknown]

NARRATIVE: CASE EVENT DATE: 20220119
